FAERS Safety Report 4843464-1 (Version None)
Quarter: 2005Q4

REPORT INFORMATION
  Report Type: 
  Country: None (occurrence: None)
  Receive Date: 20051027
  Receipt Date: 20050824
  Transmission Date: 20060501
  Serious: No
  Sender: FDA-Public Use
  Company Number: ZICO001286

PATIENT
  Age: 46 Year
  Sex: Male

DRUGS (1)
  1. PRIALT [Suspect]
     Indication: DRUG USE FOR UNKNOWN INDICATION
     Dosage: INTRATHECAL
     Route: 037
     Dates: start: 20050101

REACTIONS (5)
  - CONFUSIONAL STATE [None]
  - DYSGEUSIA [None]
  - HEADACHE [None]
  - MUSCLE SPASMS [None]
  - TRISMUS [None]
